FAERS Safety Report 24135681 (Version 2)
Quarter: 2024Q4

REPORT INFORMATION
  Report Type: Spontaneous
  Country: US (occurrence: US)
  Receive Date: 20240725
  Receipt Date: 20241014
  Transmission Date: 20250115
  Serious: Yes (Other)
  Sender: Vantive US Healthcare
  Company Number: US-VANTIVE-2024VAN018421

PATIENT
  Sex: Male

DRUGS (1)
  1. DIANEAL FOR PERITONEAL DIALYSIS [Suspect]
     Active Substance: ANHYDROUS DEXTROSE\CALCIUM CHLORIDE\MAGNESIUM CHLORIDE\SODIUM CHLORIDE\SODIUM LACTATE
     Route: 033

REACTIONS (5)
  - Sepsis [Unknown]
  - Peritonitis [Unknown]
  - Poor quality product administered [Unknown]
  - Recalled product administered [Unknown]
  - Device related infection [Unknown]
